FAERS Safety Report 10229524 (Version 2)
Quarter: 2014Q2

REPORT INFORMATION
  Report Type: Spontaneous
  Country: DE (occurrence: DE)
  Receive Date: 20140611
  Receipt Date: 20140611
  Transmission Date: 20141212
  Serious: Yes (Life-Threatening, Other)
  Sender: FDA-Public Use
  Company Number: DE-ROCHE-1398765

PATIENT
  Age: 65 Year
  Sex: Female
  Weight: 51.3 kg

DRUGS (7)
  1. ROACTEMRA [Suspect]
     Indication: RHEUMATOID ARTHRITIS
     Dosage: 8 MG/KG
     Route: 042
     Dates: start: 20090331
  2. ROACTEMRA [Suspect]
     Route: 042
     Dates: start: 20120810
  3. ROACTEMRA [Suspect]
     Route: 042
     Dates: start: 20120906
  4. ROACTEMRA [Suspect]
     Route: 042
     Dates: start: 20121008
  5. ROACTEMRA [Suspect]
     Route: 042
     Dates: start: 20121031
  6. METHOTREXATE [Concomitant]
     Route: 058
  7. IBUPROFEN [Concomitant]

REACTIONS (2)
  - Diverticulitis [Recovered/Resolved with Sequelae]
  - Diverticulum intestinal [Unknown]
